FAERS Safety Report 6321289-8 (Version None)
Quarter: 2009Q3

REPORT INFORMATION
  Report Type: 
  Country: None (occurrence: None)
  Receive Date: 20090822
  Receipt Date: 20090112
  Transmission Date: 20100115
  Serious: No
  Sender: FDA-Public Use
  Company Number: US-ABBOTT-09P-163-0496981-00

PATIENT
  Sex: Male

DRUGS (5)
  1. NIASPAN [Suspect]
     Indication: DRUG USE FOR UNKNOWN INDICATION
  2. ASPIRIN [Concomitant]
     Indication: DRUG USE FOR UNKNOWN INDICATION
  3. LISINOPRIL [Concomitant]
     Indication: DRUG USE FOR UNKNOWN INDICATION
  4. HYZAAR [Concomitant]
     Indication: DRUG USE FOR UNKNOWN INDICATION
  5. IRON [Concomitant]
     Indication: MEDICAL DIET
     Dosage: SUPPLEMENT

REACTIONS (3)
  - DIARRHOEA [None]
  - FLUSHING [None]
  - RASH MACULAR [None]
